FAERS Safety Report 5352186-2 (Version None)
Quarter: 2007Q2

REPORT INFORMATION
  Report Type: 
  Country: None (occurrence: None)
  Receive Date: 20070611
  Receipt Date: 20070531
  Transmission Date: 20071010
  Serious: Yes (Other)
  Sender: FDA-Public Use
  Company Number: IT-BAYER-200713107GDS

PATIENT
  Age: 78 Year
  Sex: Male
  Weight: 62 kg

DRUGS (5)
  1. SORAFENIB [Suspect]
     Indication: RENAL CELL CARCINOMA STAGE UNSPECIFIED
     Route: 048
     Dates: start: 20060523, end: 20070523
  2. NEURONTIN [Concomitant]
     Indication: EPILEPSY
     Route: 065
     Dates: start: 20070406, end: 20070529
  3. DILTIAZEM [Concomitant]
     Indication: HYPERTENSION
     Route: 065
     Dates: start: 20061115
  4. FOSIPRES [Concomitant]
     Indication: HYPERTENSION
     Route: 065
     Dates: start: 20060627
  5. CLEXANE [Concomitant]
     Indication: THROMBOSIS PROPHYLAXIS
     Route: 065
     Dates: start: 20061115

REACTIONS (1)
  - CEREBRAL ISCHAEMIA [None]
